FAERS Safety Report 4608479-7 (Version None)
Quarter: 2005Q1

REPORT INFORMATION
  Report Type: 
  Country: None (occurrence: None)
  Receive Date: 20050315
  Receipt Date: 20050309
  Transmission Date: 20050727
  Serious: Yes (Hospitalization)
  Sender: FDA-Public Use
  Company Number: US-GLAXOSMITHKLINE-A0549075A

PATIENT
  Age: 49 Year
  Sex: Male

DRUGS (6)
  1. LEXIVA [Suspect]
     Indication: HIV INFECTION
     Dosage: 700MG TWICE PER DAY
     Route: 048
     Dates: start: 20041001, end: 20041201
  2. ZIAGEN [Concomitant]
     Indication: HIV INFECTION
     Dates: start: 20041001
  3. NORVIR [Concomitant]
     Indication: HIV INFECTION
     Dates: start: 20041001
  4. VIRACEPT [Concomitant]
     Indication: HIV INFECTION
     Dates: start: 20041001
  5. TOPROL-XL [Concomitant]
  6. IMDUR [Concomitant]

REACTIONS (18)
  - ABDOMINAL PAIN UPPER [None]
  - ABNORMAL DREAMS [None]
  - AGEUSIA [None]
  - ANOREXIA [None]
  - ANOSMIA [None]
  - ASTHENIA [None]
  - BACK PAIN [None]
  - BLOOD BILIRUBIN INCREASED [None]
  - FAT ATROPHY [None]
  - FATIGUE [None]
  - HEPATIC ENZYME INCREASED [None]
  - HEPATITIS B [None]
  - HEPATOCELLULAR DAMAGE [None]
  - INSOMNIA [None]
  - JAUNDICE [None]
  - OEDEMA PERIPHERAL [None]
  - SWELLING FACE [None]
  - WEIGHT DECREASED [None]
